FAERS Safety Report 8756364 (Version 1)
Quarter: 2012Q4

REPORT INFORMATION
  Report Type: 
  Country: FR (occurrence: FR)
  Receive Date: 20120828
  Receipt Date: 20120828
  Transmission Date: 20130627
  Serious: Yes (Life-Threatening, Other)
  Sender: FDA-Public Use
  Company Number: FR-JNJFOC-20120809610

PATIENT
  Age: 47 Year
  Sex: Male

DRUGS (17)
  1. REMICADE [Suspect]
     Indication: JUVENILE ARTHRITIS
     Route: 042
     Dates: start: 201104, end: 201105
  2. KINERET [Suspect]
     Indication: JUVENILE ARTHRITIS
     Route: 058
     Dates: start: 201109, end: 20120607
  3. KINERET [Suspect]
     Indication: JUVENILE ARTHRITIS
     Route: 058
     Dates: start: 200904, end: 200911
  4. KINERET [Suspect]
     Indication: JUVENILE ARTHRITIS
     Route: 058
  5. METOJECT [Suspect]
     Indication: JUVENILE ARTHRITIS
     Route: 058
  6. METOJECT [Suspect]
     Indication: JUVENILE ARTHRITIS
     Route: 058
     Dates: end: 20120607
  7. CORTANCYL [Suspect]
     Indication: JUVENILE ARTHRITIS
     Route: 048
  8. CORTANCYL [Suspect]
     Indication: JUVENILE ARTHRITIS
     Route: 048
     Dates: end: 20120607
  9. ROACTEMRA [Suspect]
     Indication: JUVENILE ARTHRITIS
     Route: 042
     Dates: start: 201002, end: 201102
  10. PARACETAMOL [Concomitant]
     Route: 065
  11. KALEORID [Concomitant]
     Route: 065
  12. PARACETAMOL AND CODEINE [Concomitant]
     Route: 065
  13. CACIT D3 [Concomitant]
     Route: 065
  14. FOSAVANCE [Concomitant]
     Route: 065
  15. INEXIUM [Concomitant]
     Route: 065
  16. PREVISCAN (FLUINDIONE) [Concomitant]
     Route: 065
  17. KARDEGIC [Concomitant]
     Route: 065

REACTIONS (5)
  - B-cell lymphoma [Not Recovered/Not Resolved]
  - Lower respiratory tract infection bacterial [Unknown]
  - Post transplant lymphoproliferative disorder [Not Recovered/Not Resolved]
  - Congestive cardiomyopathy [Unknown]
  - Drug ineffective [Unknown]
